FAERS Safety Report 16908807 (Version 1)
Quarter: 2019Q4

REPORT INFORMATION
  Report Type: Spontaneous
  Country: US (occurrence: US)
  Receive Date: 20191011
  Receipt Date: 20191011
  Transmission Date: 20200122
  Serious: No
  Sender: FDA-Public Use
  Company Number: US-PFIZER INC-2019434598

PATIENT
  Sex: Female

DRUGS (1)
  1. DOCETAXEL. [Suspect]
     Active Substance: DOCETAXEL
     Indication: ENDOMETRIAL CANCER
     Dosage: UNK
     Dates: start: 2019

REACTIONS (3)
  - Off label use [Unknown]
  - Carbohydrate antigen 125 increased [Unknown]
  - Product use in unapproved indication [Unknown]
